FAERS Safety Report 12342279 (Version 1)
Quarter: 2016Q2

REPORT INFORMATION
  Report Type: Spontaneous
  Country: US (occurrence: US)
  Receive Date: 20160506
  Receipt Date: 20160506
  Transmission Date: 20160815
  Serious: Yes (Death, Life-Threatening, Other)
  Sender: FDA-Public Use
  Company Number: US-MDT-ADR-2016-00820

PATIENT
  Age: 57 Year
  Sex: Male

DRUGS (1)
  1. LIORESAL [Suspect]
     Active Substance: BACLOFEN
     Dosage: 103.9 MCG/DAY
     Route: 037

REACTIONS (6)
  - Cardiac arrest [Fatal]
  - Unevaluable event [Fatal]
  - Aortic stenosis [Fatal]
  - Multimorbidity [Fatal]
  - Respiratory arrest [Fatal]
  - Hypertensive heart disease [Fatal]

NARRATIVE: CASE EVENT DATE: 20130528
